FAERS Safety Report 10190784 (Version 3)
Quarter: 2014Q3

REPORT INFORMATION
  Report Type: Spontaneous
  Country: US (occurrence: US)
  Receive Date: 20140523
  Receipt Date: 20140704
  Transmission Date: 20150326
  Serious: Yes (Hospitalization)
  Sender: FDA-Public Use
  Company Number: US-ALEXION PHARMACEUTICALS INC.-A201401810

PATIENT

DRUGS (2)
  1. SOLIRIS [Suspect]
     Active Substance: ECULIZUMAB
     Indication: PAROXYSMAL NOCTURNAL HAEMOGLOBINURIA
     Dosage: 600 MG, QW FOR 4 WKS
     Route: 042
  2. SOLIRIS [Suspect]
     Active Substance: ECULIZUMAB
     Indication: OFF LABEL USE
     Dosage: 900 MG, STARTING WEEK 5 THEN Q2W
     Route: 042

REACTIONS (4)
  - Fatigue [Unknown]
  - Dyspnoea [Unknown]
  - Anaemia [Unknown]
  - Off label use [Unknown]
